FAERS Safety Report 23100751 (Version 1)
Quarter: 2023Q4

REPORT INFORMATION
  Report Type: Spontaneous
  Country: US (occurrence: US)
  Receive Date: 20231024
  Receipt Date: 20231024
  Transmission Date: 20240109
  Serious: Yes (Hospitalization)
  Sender: FDA-Public Use
  Company Number: US-UPSHER-SMITH LABORATORIES, LLC-2023USL00869

PATIENT
  Age: 34 Year
  Sex: Male

DRUGS (2)
  1. TESTOSTERONE [Suspect]
     Active Substance: TESTOSTERONE
     Indication: Muscle building therapy
  2. UNSPECIFIED INGREDIENT [Suspect]
     Active Substance: UNSPECIFIED INGREDIENT
     Indication: Muscle building therapy

REACTIONS (3)
  - Coronary artery dissection [Not Recovered/Not Resolved]
  - Acute myocardial infarction [Recovering/Resolving]
  - Thrombosis [Not Recovered/Not Resolved]
